FAERS Safety Report 8833244 (Version 1)
Quarter: 2012Q4

REPORT INFORMATION
  Report Type: 
  Country: US (occurrence: US)
  Receive Date: 20121010
  Receipt Date: 20121010
  Transmission Date: 20130627
  Serious: Yes (Other)
  Sender: FDA-Public Use
  Company Number: PHHY2012US088783

PATIENT

DRUGS (2)
  1. ZOMETA [Suspect]
     Indication: MULTIPLE MYELOMA
     Dosage: 4 mg in 100 ml normal saline over 15 min every 28 days
     Route: 042
  2. THALIDOMIDE [Suspect]
     Dosage: 200 mg, daily

REACTIONS (1)
  - Osteonecrosis of jaw [Unknown]
